FAERS Safety Report 5816159-5 (Version None)
Quarter: 2008Q3

REPORT INFORMATION
  Report Type: 
  Country: None (occurrence: None)
  Receive Date: 20080717
  Receipt Date: 20080717
  Transmission Date: 20090109
  Serious: Yes (Other)
  Sender: FDA-Public Use
  Company Number: None

PATIENT
  Sex: Female
  Weight: 50.8029 kg

DRUGS (1)
  1. VYTORIN [Suspect]
     Indication: BLOOD CHOLESTEROL INCREASED
     Dosage: REGULAR DAILY
     Dates: start: 20060301, end: 20070701

REACTIONS (5)
  - COUGH [None]
  - DECREASED ACTIVITY [None]
  - FATIGUE [None]
  - ILL-DEFINED DISORDER [None]
  - RESPIRATORY DISORDER [None]
